FAERS Safety Report 8221253-8 (Version None)
Quarter: 2012Q1

REPORT INFORMATION
  Report Type: 
  Country: None (occurrence: None)
  Receive Date: 20120320
  Receipt Date: 20120312
  Transmission Date: 20120608
  Serious: Yes (Other)
  Sender: FDA-Public Use
  Company Number: PHEH2012US004632

PATIENT
  Sex: Female

DRUGS (2)
  1. TEGRETOL [Suspect]
     Indication: CONVULSION
     Dosage: MORNING 150MG, AFTERNOON 150MG AND NIGHT 250MG
     Route: 048
  2. CARBAMAZEPINE [Suspect]
     Indication: CONVULSION

REACTIONS (7)
  - LIP SWELLING [None]
  - COUGH [None]
  - LIP DISCOLOURATION [None]
  - HYPOAESTHESIA [None]
  - TONGUE DISCOLOURATION [None]
  - ABDOMINAL DISCOMFORT [None]
  - SWOLLEN TONGUE [None]
